FAERS Safety Report 19055243 (Version 1)
Quarter: 2021Q1

REPORT INFORMATION
  Report Type: Spontaneous
  Country: US (occurrence: US)
  Receive Date: 20210325
  Receipt Date: 20210325
  Transmission Date: 20210420
  Serious: No
  Sender: FDA-Public Use
  Company Number: US-CADILA HEALTHCARE LIMITED-US-ZYDUS-054239

PATIENT
  Sex: Female

DRUGS (3)
  1. LAMOTRIGINE TABLET [Suspect]
     Active Substance: LAMOTRIGINE
     Dosage: 400 MILLIGRAM, QD
     Route: 048
     Dates: end: 2020
  2. XANAX [Concomitant]
     Active Substance: ALPRAZOLAM
     Indication: PRODUCT USED FOR UNKNOWN INDICATION
     Dosage: UNK
  3. LAMOTRIGINE TABLET [Suspect]
     Active Substance: LAMOTRIGINE
     Indication: BIPOLAR II DISORDER
     Dosage: 300 MILLIGRAM, QD
     Route: 048

REACTIONS (2)
  - Feeling abnormal [Recovered/Resolved]
  - Migraine [Recovered/Resolved]
